FAERS Safety Report 8657543 (Version 2)
Quarter: 2013Q2

REPORT INFORMATION
  Report Type: Spontaneous
  Country: CA (occurrence: CA)
  Receive Date: 20120710
  Receipt Date: 20130503
  Transmission Date: 20140414
  Serious: Yes (Other)
  Sender: FDA-Public Use
  Company Number: CA-JNJFOC-20120506632

PATIENT
  Age: 51 Year
  Sex: Female
  Weight: 54 kg

DRUGS (9)
  1. REMICADE [Suspect]
     Indication: COLITIS ULCERATIVE
     Dosage: 3RD INFUSION
     Route: 042
     Dates: start: 20120504
  2. REMICADE [Suspect]
     Indication: COLITIS ULCERATIVE
     Route: 042
     Dates: start: 20120628
  3. REMICADE [Suspect]
     Indication: COLITIS ULCERATIVE
     Route: 042
     Dates: start: 201203
  4. IMURAN [Concomitant]
     Route: 048
  5. HYDROCORTISONE [Concomitant]
     Indication: PREMEDICATION
     Route: 042
  6. REACTINE [Concomitant]
     Indication: PREMEDICATION
     Route: 048
  7. TYLENOL [Concomitant]
     Indication: PREMEDICATION
     Route: 048
  8. BENADRYL [Concomitant]
     Indication: PREMEDICATION
     Route: 042
  9. SOLUCORTEF [Concomitant]
     Indication: PREMEDICATION
     Route: 042

REACTIONS (5)
  - Tachycardia [Unknown]
  - Infusion related reaction [Recovered/Resolved]
  - Dyspnoea [Recovered/Resolved]
  - Flushing [Recovered/Resolved]
  - Swelling [Recovered/Resolved]
